FAERS Safety Report 5781956-1 (Version None)
Quarter: 2008Q2

REPORT INFORMATION
  Report Type: 
  Country: None (occurrence: None)
  Receive Date: 20080623
  Receipt Date: 20080618
  Transmission Date: 20081010
  Serious: Yes (Other)
  Sender: FDA-Public Use
  Company Number: B0525998A

PATIENT
  Age: 56 Year
  Sex: Male
  Weight: 93 kg

DRUGS (4)
  1. ZYBAN [Suspect]
     Indication: SMOKING CESSATION THERAPY
     Dosage: 150MG TWICE PER DAY
     Route: 048
     Dates: start: 20080128
  2. DIAZEPAM [Concomitant]
     Indication: DEPRESSION
     Route: 048
     Dates: start: 20040101
  3. GLIMEPIRIDE [Concomitant]
     Dosage: 2MG PER DAY
     Route: 048
     Dates: start: 20040101
  4. SIMVASTATIN [Concomitant]
     Dosage: 40MG PER DAY
     Route: 048
     Dates: start: 20060101

REACTIONS (5)
  - HYPERKERATOSIS [None]
  - LIP DRY [None]
  - NAIL DISORDER [None]
  - RASH VESICULAR [None]
  - SUICIDAL IDEATION [None]
